FAERS Safety Report 9745650 (Version 2)
Quarter: 2013Q4

REPORT INFORMATION
  Report Type: Spontaneous
  Country: DE (occurrence: DE)
  Receive Date: 20131211
  Receipt Date: 20131216
  Transmission Date: 20140711
  Serious: Yes (Hospitalization, Other)
  Sender: FDA-Public Use
  Company Number: DE-JNJFOC-20131205349

PATIENT
  Age: 90 Year
  Sex: Male
  Weight: 72 kg

DRUGS (2)
  1. XARELTO [Suspect]
     Indication: CEREBROVASCULAR ACCIDENT PROPHYLAXIS
     Dosage: 15 UNSPECIFIED UNITS
     Route: 048
     Dates: start: 20130419
  2. XARELTO [Suspect]
     Indication: ATRIAL FIBRILLATION
     Dosage: 15 UNSPECIFIED UNITS
     Route: 048
     Dates: start: 20130419

REACTIONS (9)
  - Cerebral infarction [Recovering/Resolving]
  - Hemiparesis [Recovering/Resolving]
  - Gamma-glutamyltransferase abnormal [Unknown]
  - Speech disorder [Unknown]
  - Syncope [Unknown]
  - Cerebral artery occlusion [Unknown]
  - Aphasia [Unknown]
  - Vomiting [Unknown]
  - Drug ineffective [Unknown]
